FAERS Safety Report 8333382-9 (Version None)
Quarter: 2012Q2

REPORT INFORMATION
  Report Type: 
  Country: None (occurrence: None)
  Receive Date: 20120503
  Receipt Date: 20120426
  Transmission Date: 20120825
  Serious: Yes (Other)
  Sender: FDA-Public Use
  Company Number: CA-JNJFOC-20120413997

PATIENT

DRUGS (3)
  1. INVEGA SUSTENNA [Suspect]
     Dosage: DAY 38
     Route: 030
  2. INVEGA SUSTENNA [Suspect]
     Dosage: DAY 1
     Route: 030
  3. INVEGA SUSTENNA [Suspect]
     Indication: PRODUCT USED FOR UNKNOWN INDICATION
     Dosage: DAY 8
     Route: 030

REACTIONS (3)
  - GAZE PALSY [None]
  - LOSS OF CONSCIOUSNESS [None]
  - PHOTOSENSITIVITY REACTION [None]
